FAERS Safety Report 10551103 (Version 1)
Quarter: 2014Q4

REPORT INFORMATION
  Report Type: Spontaneous
  Country: US (occurrence: None)
  Receive Date: 20141020
  Receipt Date: 20141020
  Transmission Date: 20150529
  Serious: No
  Sender: FDA-Public Use
  Company Number: AEGR000633

PATIENT
  Age: 41 Year
  Sex: Male
  Weight: 103.9 kg

DRUGS (23)
  1. NIASPAN (NICOTINIC ACID) [Concomitant]
  2. NORVASC (AMIODIPINE BESILATE) [Concomitant]
  3. ISOSORBIDE MONONITRATE. [Concomitant]
     Active Substance: ISOSORBIDE MONONITRATE
  4. METOPROLOL TARTRATE. [Concomitant]
     Active Substance: METOPROLOL TARTRATE
  5. JUXTAPID [Suspect]
     Active Substance: LOMITAPIDE MESYLATE
     Indication: TYPE IIA HYPERLIPIDAEMIA
     Route: 048
     Dates: start: 20140106
  6. RANOLAZINE [Concomitant]
     Active Substance: RANOLAZINE
  7. LORATADINE. [Concomitant]
     Active Substance: LORATADINE
  8. DULOXETINE [Concomitant]
     Active Substance: DULOXETINE
  9. LEVOTHYROXINE (LEVOTHYROXINE SODIUM) [Concomitant]
  10. COREG [Concomitant]
     Active Substance: CARVEDILOL
  11. OMACOR (OMEGA-3-ACID ETHYL ESTER) [Concomitant]
  12. ROSUVASTATIN [Concomitant]
     Active Substance: ROSUVASTATIN
  13. VALSARTAN. [Concomitant]
     Active Substance: VALSARTAN
  14. OMEPRAZOLE. [Concomitant]
     Active Substance: OMEPRAZOLE
  15. CIOPIDOGREL [Concomitant]
  16. EZETIMIBE. [Concomitant]
     Active Substance: EZETIMIBE
  17. LANTUS [Concomitant]
     Active Substance: INSULIN GLARGINE
  18. NIACIN (NICOTINIC ACID) [Concomitant]
  19. METFORMIN [Concomitant]
     Active Substance: METFORMIN HYDROCHLORIDE
  20. TRILIPIX [Concomitant]
     Active Substance: FENOFIBRIC ACID
  21. SPIRONOLACTONE. [Concomitant]
     Active Substance: SPIRONOLACTONE
  22. FENOFIBRIC ACID. [Concomitant]
     Active Substance: FENOFIBRIC ACID
  23. FUROSEMIDE. [Concomitant]
     Active Substance: FUROSEMIDE

REACTIONS (1)
  - Hepatic enzyme increased [None]

NARRATIVE: CASE EVENT DATE: 20140529
